FAERS Safety Report 8103631-0 (Version None)
Quarter: 2012Q1

REPORT INFORMATION
  Report Type: 
  Country: None (occurrence: None)
  Receive Date: 20120201
  Receipt Date: 20120131
  Transmission Date: 20120608
  Serious: Yes (Other)
  Sender: FDA-Public Use
  Company Number: US-BAYER-2012-009723

PATIENT
  Age: 68 Year
  Sex: Female

DRUGS (1)
  1. INTERFERON BETA-1B [Suspect]
     Indication: MULTIPLE SCLEROSIS
     Dosage: 8 MIU, QOD
     Route: 058
     Dates: start: 20000814

REACTIONS (4)
  - ORAL CANDIDIASIS [None]
  - VULVOVAGINAL MYCOTIC INFECTION [None]
  - ONYCHOMYCOSIS [None]
  - SINUSITIS [None]
